FAERS Safety Report 17058470 (Version 1)
Quarter: 2019Q4

REPORT INFORMATION
  Report Type: Spontaneous
  Country: US (occurrence: US)
  Receive Date: 20191023
  Receipt Date: 20191023
  Transmission Date: 20200122
  Serious: No
  Sender: FDA-Public Use
  Company Number: None

PATIENT
  Age: 51 Year
  Sex: Female

DRUGS (1)
  1. HARVONI [Suspect]
     Active Substance: LEDIPASVIR\SOFOSBUVIR
     Route: 048
     Dates: start: 201909

REACTIONS (4)
  - Diarrhoea [None]
  - Abdominal pain upper [None]
  - Vomiting [None]
  - Rhinorrhoea [None]

NARRATIVE: CASE EVENT DATE: 20191023
